FAERS Safety Report 9194224 (Version 2)
Quarter: 2013Q2

REPORT INFORMATION
  Report Type: Spontaneous
  Country: US (occurrence: US)
  Receive Date: 20130327
  Receipt Date: 20130425
  Transmission Date: 20140414
  Serious: Yes (Hospitalization)
  Sender: FDA-Public Use
  Company Number: US-ROXANE LABORATORIES, INC.-2013-RO-00424RO

PATIENT
  Age: 43 Year
  Sex: Female
  Weight: 45 kg

DRUGS (8)
  1. PREDNISONE [Suspect]
     Indication: IDIOPATHIC PULMONARY FIBROSIS
     Dates: start: 201212, end: 201301
  2. OXYGEN [Concomitant]
     Indication: IDIOPATHIC PULMONARY FIBROSIS
     Dates: start: 20130321
  3. INSULIN GLARGINE [Concomitant]
     Indication: TYPE 2 DIABETES MELLITUS
  4. GABAPENTIN [Concomitant]
     Indication: DIABETIC NEUROPATHY
  5. METFORMIN [Concomitant]
     Indication: TYPE 2 DIABETES MELLITUS
  6. LYRICA [Concomitant]
     Indication: DIABETIC NEUROPATHY
  7. NOVOLOG [Concomitant]
  8. LEVETIRACETAM [Concomitant]
     Indication: CONVULSION

REACTIONS (1)
  - Idiopathic pulmonary fibrosis [Unknown]
